FAERS Safety Report 19743490 (Version 1)
Quarter: 2021Q3

REPORT INFORMATION
  Report Type: Spontaneous
  Country: US (occurrence: US)
  Receive Date: 20210824
  Receipt Date: 20210824
  Transmission Date: 20211014
  Serious: No
  Sender: FDA-Public Use
  Company Number: US-EVOLUS, INC.-2021EV000118

PATIENT
  Sex: Female

DRUGS (2)
  1. JEUVEAU [Suspect]
     Active Substance: PRABOTULINUMTOXINA-XVFS
     Indication: SKIN WRINKLING
  2. JEUVEAU [Suspect]
     Active Substance: PRABOTULINUMTOXINA-XVFS
     Indication: PRODUCT USED FOR UNKNOWN INDICATION
     Dosage: 9 UNITS FOR GLABELLAR LINES, 6 UNITS FOR DEPRESSOR ANGULI ORIS, 4 UNITS FOR CHIN AND 3 UNITS FOR FOR
     Dates: start: 20200928

REACTIONS (2)
  - Visual impairment [Unknown]
  - Off label use [Unknown]
